FAERS Safety Report 21224086 (Version 1)
Quarter: 2022Q3

REPORT INFORMATION
  Report Type: Spontaneous
  Country: US (occurrence: US)
  Receive Date: 20220817
  Receipt Date: 20220817
  Transmission Date: 20221026
  Serious: No
  Sender: FDA-Public Use
  Company Number: US-SA-2022MK000176

PATIENT
  Age: 64 Year
  Sex: Female
  Weight: 56.750 kg

DRUGS (4)
  1. AFREZZA [Suspect]
     Active Substance: INSULIN HUMAN
     Indication: Type 1 diabetes mellitus
     Dosage: 8 UNITS BEFORE MEALS
     Dates: start: 20220602, end: 20220605
  2. LEVOTHYROXINE [Concomitant]
     Active Substance: LEVOTHYROXINE
     Indication: Thyroid disorder
     Route: 048
     Dates: start: 1990
  3. LYUMJEV [Concomitant]
     Active Substance: INSULIN LISPRO-AABC
     Indication: Type 1 diabetes mellitus
     Dosage: 6 UNITS AT MEALS
     Dates: start: 200006
  4. TOUJEO [Concomitant]
     Active Substance: INSULIN GLARGINE
     Indication: Type 1 diabetes mellitus
     Route: 058
     Dates: start: 200006

REACTIONS (2)
  - Cough [Unknown]
  - Blood glucose increased [Recovered/Resolved]
